APPROVED DRUG PRODUCT: DORAL
Active Ingredient: QUAZEPAM
Strength: 15MG
Dosage Form/Route: TABLET;ORAL
Application: N018708 | Product #001
Applicant: GALT PHARMACEUTICALS LLC
Approved: Dec 27, 1985 | RLD: Yes | RS: Yes | Type: RX

PATENTS:
Patent 7608616 | Expires: Jun 3, 2028